FAERS Safety Report 15549617 (Version 1)
Quarter: 2018Q4

REPORT INFORMATION
  Report Type: Report from Study
  Country: FR (occurrence: FR)
  Receive Date: 20181025
  Receipt Date: 20181025
  Transmission Date: 20190205
  Serious: Yes (Life-Threatening, Other)
  Sender: FDA-Public Use
  Company Number: FR-AUROBINDO-AUR-APL-2018-051071

PATIENT
  Age: 66 Year
  Sex: Female

DRUGS (2)
  1. GEMCITABINE [Concomitant]
     Active Substance: GEMCITABINE\GEMCITABINE HYDROCHLORIDE
     Indication: OVARIAN CANCER RECURRENT
     Dosage: UNK, 6 CYCLICAL,(ON DAYS 1 AND 8, FOR 6 CYCLES)
     Route: 065
     Dates: start: 2015
  2. CARBOPLATIN. [Suspect]
     Active Substance: CARBOPLATIN
     Indication: OVARIAN CANCER RECURRENT
     Dosage: UNK, CYCLICAL,(ON DAYS 1 AND 8, FOR 6 CYCLES)
     Route: 065
     Dates: start: 2015

REACTIONS (7)
  - Anaemia [Unknown]
  - Neuropathy peripheral [Unknown]
  - Hepatotoxicity [Recovered/Resolved]
  - Hypersensitivity [Recovered/Resolved]
  - Escherichia infection [Recovered/Resolved]
  - Toxicity to various agents [Unknown]
  - Neutropenia [Recovered/Resolved]

NARRATIVE: CASE EVENT DATE: 2014
